FAERS Safety Report 15901068 (Version 4)
Quarter: 2019Q1

REPORT INFORMATION
  Report Type: Spontaneous
  Country: BR (occurrence: BR)
  Receive Date: 20190201
  Receipt Date: 20190312
  Transmission Date: 20190417
  Serious: Yes (Death, Hospitalization)
  Sender: FDA-Public Use
  Company Number: BR-BIOMARINAP-BR-2019-121779

PATIENT
  Sex: Male

DRUGS (2)
  1. NAGLAZYME [Suspect]
     Active Substance: GALSULFASE
     Indication: MUCOPOLYSACCHARIDOSIS VI
     Dosage: 25 MILLIGRAM, QW
     Route: 042
     Dates: start: 20110214
  2. BACLOFEN. [Concomitant]
     Active Substance: BACLOFEN
     Indication: TREMOR

REACTIONS (6)
  - Pneumonia [Fatal]
  - Respiratory failure [Unknown]
  - Oxygen saturation decreased [Unknown]
  - Dyspnoea [Unknown]
  - Malnutrition [Unknown]
  - Fatigue [Unknown]
